FAERS Safety Report 21585831 (Version 2)
Quarter: 2022Q4

REPORT INFORMATION
  Report Type: Report from Study
  Country: TR (occurrence: TR)
  Receive Date: 20221111
  Receipt Date: 20221125
  Transmission Date: 20230112
  Serious: Yes (Death)
  Sender: FDA-Public Use
  Company Number: TR-PFIZER INC-PV202200101776

PATIENT
  Age: 73 Year
  Sex: Female

DRUGS (2)
  1. DACOMITINIB [Suspect]
     Active Substance: DACOMITINIB
     Indication: Non-small cell lung cancer
     Dosage: 30 MG
     Route: 048
     Dates: start: 202005
  2. DENOSUMAB [Suspect]
     Active Substance: DENOSUMAB
     Indication: Metastasis
     Dosage: UNK
     Dates: start: 20220527

REACTIONS (3)
  - Neoplasm progression [Fatal]
  - Cardiac arrest [Fatal]
  - Respiratory failure [Fatal]

NARRATIVE: CASE EVENT DATE: 20210801
